FAERS Safety Report 21299466 (Version 1)
Quarter: 2022Q3

REPORT INFORMATION
  Report Type: Spontaneous
  Country: US (occurrence: None)
  Receive Date: 20220906
  Receipt Date: 20220906
  Transmission Date: 20221026
  Serious: No
  Sender: FDA-Public Use
  Company Number: None

PATIENT

DRUGS (2)
  1. FLUMAZENIL [Suspect]
     Active Substance: FLUMAZENIL
  2. ETOMIDATE [Suspect]
     Active Substance: ETOMIDATE
     Route: 042

REACTIONS (4)
  - Product packaging confusion [None]
  - Product label confusion [None]
  - Wrong product stored [None]
  - Intercepted product administration error [None]
